FAERS Safety Report 16792699 (Version 4)
Quarter: 2020Q1

REPORT INFORMATION
  Report Type: Report from Study
  Country: KR (occurrence: KR)
  Receive Date: 20190910
  Receipt Date: 20200102
  Transmission Date: 20200409
  Serious: Yes (Hospitalization)
  Sender: FDA-Public Use
  Company Number: KR-CELLTRION INC.-2019KR024417

PATIENT

DRUGS (31)
  1. TRAMADOL HYDROCHLORIDE. [Concomitant]
     Active Substance: TRAMADOL HYDROCHLORIDE
     Dosage: 50 MG, TID
     Route: 042
     Dates: start: 20191018, end: 20191018
  2. DICHLOZID [Concomitant]
     Indication: PROPHYLAXIS
     Dosage: 12.5 MG, QD
     Route: 048
     Dates: start: 20161213, end: 20190906
  3. TRAMADOL HYDROCHLORIDE. [Concomitant]
     Active Substance: TRAMADOL HYDROCHLORIDE
     Dosage: 50 MG, QD
     Route: 042
     Dates: start: 20190930, end: 20190930
  4. LACTULOSE. [Concomitant]
     Active Substance: LACTULOSE
     Dosage: 1 PACK, BID
     Route: 048
     Dates: start: 20191027, end: 20191027
  5. PENNEL [ALLIUM SATIVUM OIL] [Concomitant]
     Indication: LIVER FUNCTION TEST ABNORMAL
     Dosage: 2 CAP, TID
     Route: 048
     Dates: start: 20191014, end: 20191114
  6. CELECOXIB. [Concomitant]
     Active Substance: CELECOXIB
     Indication: RHEUMATOID ARTHRITIS
     Dosage: 200 MG, BID
     Route: 048
     Dates: start: 20120116
  7. SALAGEN [Concomitant]
     Active Substance: PILOCARPINE HYDROCHLORIDE
     Indication: SJOGREN^S SYNDROME
     Dosage: 5 MG, BID
     Route: 048
     Dates: start: 20130218
  8. TRAMADOL HYDROCHLORIDE. [Concomitant]
     Active Substance: TRAMADOL HYDROCHLORIDE
     Dosage: 50 MG, BID
     Route: 042
     Dates: start: 20190929, end: 20190929
  9. TRAMADOL HYDROCHLORIDE. [Concomitant]
     Active Substance: TRAMADOL HYDROCHLORIDE
     Dosage: 50 MG, QD
     Route: 042
     Dates: start: 20191019, end: 20191019
  10. TRAMADOL HYDROCHLORIDE. [Concomitant]
     Active Substance: TRAMADOL HYDROCHLORIDE
     Dosage: 50 MG, QD
     Route: 042
     Dates: start: 20191021, end: 20191022
  11. LACTULOSE. [Concomitant]
     Active Substance: LACTULOSE
     Dosage: 1 PACK, TID
     Route: 048
     Dates: start: 20191004, end: 20191004
  12. MIDAZOLAM HYDROCHLORIDE. [Concomitant]
     Active Substance: MIDAZOLAM HYDROCHLORIDE
     Indication: BRONCHOSCOPY
     Dosage: 2.5 MG, QD
     Route: 042
     Dates: start: 20190905, end: 20190905
  13. TRAMADOL HYDROCHLORIDE. [Concomitant]
     Active Substance: TRAMADOL HYDROCHLORIDE
     Indication: BACK PAIN
     Dosage: 100 MG, BID
     Route: 042
     Dates: start: 20190924, end: 20190924
  14. TRAMADOL HYDROCHLORIDE. [Concomitant]
     Active Substance: TRAMADOL HYDROCHLORIDE
     Dosage: 50 MG, QD
     Route: 042
     Dates: start: 20190926, end: 20190927
  15. TRAMADOL HYDROCHLORIDE. [Concomitant]
     Active Substance: TRAMADOL HYDROCHLORIDE
     Dosage: 50 MG, BID
     Route: 042
     Dates: start: 20191001, end: 20191001
  16. TRAMADOL HYDROCHLORIDE. [Concomitant]
     Active Substance: TRAMADOL HYDROCHLORIDE
     Dosage: 50 MG, QD
     Route: 042
     Dates: start: 20191103, end: 20191103
  17. KETOPROFEN. [Concomitant]
     Active Substance: KETOPROFEN
     Indication: RHEUMATOID ARTHRITIS
     Dosage: 1 EA, QD
     Route: 062
     Dates: start: 20190923, end: 20190923
  18. TRUXIMA [Suspect]
     Active Substance: RITUXIMAB-ABBS
     Indication: RHEUMATOID ARTHRITIS
     Dosage: 1000 MG, EVERY 2 WEEKS
     Route: 042
     Dates: start: 20190821, end: 20190821
  19. FUROSEMIDE. [Concomitant]
     Active Substance: FUROSEMIDE
     Indication: PULMONARY CONGESTION
     Dosage: 20 MG, QD
     Route: 048
     Dates: start: 20191001
  20. TRAMADOL HYDROCHLORIDE. [Concomitant]
     Active Substance: TRAMADOL HYDROCHLORIDE
     Dosage: 50 MG, BID
     Route: 042
     Dates: start: 20191016, end: 20191016
  21. LACTULOSE. [Concomitant]
     Active Substance: LACTULOSE
     Dosage: 1 PACK, BID
     Route: 048
     Dates: start: 20191005, end: 20191005
  22. FOLIC ACID. [Concomitant]
     Active Substance: FOLIC ACID
     Indication: PROPHYLAXIS
     Dosage: 1 MG, QD
     Route: 048
     Dates: start: 20091207, end: 20191101
  23. REBAMIPIDE [Concomitant]
     Active Substance: REBAMIPIDE
     Indication: PROPHYLAXIS
     Dosage: 100 MG, BID
     Route: 048
     Dates: start: 20091207
  24. CANDESARTAN CILEXETIL. [Concomitant]
     Active Substance: CANDESARTAN CILEXETIL
     Indication: LEFT VENTRICULAR FAILURE
     Dosage: 4 MG, QD
     Route: 048
     Dates: start: 20181015, end: 20190918
  25. CARVEDILOL. [Concomitant]
     Active Substance: CARVEDILOL
     Indication: LEFT VENTRICULAR FAILURE
     Dosage: 3.125 MG, BID
     Route: 048
     Dates: start: 20190722, end: 20190918
  26. TRAMADOL HYDROCHLORIDE. [Concomitant]
     Active Substance: TRAMADOL HYDROCHLORIDE
     Dosage: 50 MG, QD
     Route: 042
     Dates: start: 20191017, end: 20191017
  27. TRAMADOL HYDROCHLORIDE. [Concomitant]
     Active Substance: TRAMADOL HYDROCHLORIDE
     Dosage: 50 MG, BID
     Route: 042
     Dates: start: 20191020, end: 20191020
  28. LACTULOSE. [Concomitant]
     Active Substance: LACTULOSE
     Indication: CONSTIPATION
     Dosage: 1 PACK, BID
     Route: 048
     Dates: start: 20191003, end: 20191003
  29. LACTULOSE. [Concomitant]
     Active Substance: LACTULOSE
     Dosage: 1 PACK, TID
     Route: 048
     Dates: start: 20191028, end: 20191029
  30. GODEX [ADENINE HYDROCHLORIDE;CARNITINE OROTATE;CYANOCOBALAMIN;LIVER EX [Concomitant]
     Indication: LIVER FUNCTION TEST ABNORMAL
     Dosage: 2 CAP, QD
     Route: 048
     Dates: start: 20191013, end: 20191013
  31. HEPA-MERZ [ORNITHINE ASPARTATE] [Concomitant]
     Indication: LIVER FUNCTION TEST ABNORMAL
     Dosage: 1 PACK, TID
     Route: 048
     Dates: start: 20191013, end: 20191114

REACTIONS (1)
  - Pneumocystis jirovecii pneumonia [Recovering/Resolving]

NARRATIVE: CASE EVENT DATE: 20190903
